FAERS Safety Report 9458199 (Version 1)
Quarter: 2013Q3

REPORT INFORMATION
  Report Type: Spontaneous
  Country: IN (occurrence: None)
  Receive Date: 20130812
  Receipt Date: 20130812
  Transmission Date: 20140515
  Serious: Yes (Other)
  Sender: FDA-Public Use
  Company Number: 2013P1016073

PATIENT
  Sex: Female

DRUGS (2)
  1. PHENOBARBITAL [Suspect]
  2. PHENYTOIN [Suspect]

REACTIONS (1)
  - Drug hypersensitivity [None]
